FAERS Safety Report 12529091 (Version 1)
Quarter: 2016Q3

REPORT INFORMATION
  Report Type: Spontaneous
  Country: FR (occurrence: FR)
  Receive Date: 20160705
  Receipt Date: 20160705
  Transmission Date: 20161109
  Serious: Yes (Other)
  Sender: FDA-Public Use
  Company Number: FR-SA-2016SA122667

PATIENT
  Age: 93 Year
  Sex: Female

DRUGS (7)
  1. EBIXA [Concomitant]
     Active Substance: MEMANTINE HYDROCHLORIDE
     Dosage: 10
  2. ZYPREXA [Concomitant]
     Active Substance: OLANZAPINE
     Dosage: 5
  3. XANAX [Concomitant]
     Active Substance: ALPRAZOLAM
     Dosage: 0.25
  4. ATIVAN [Concomitant]
     Active Substance: LORAZEPAM
  5. APROVEL [Suspect]
     Active Substance: IRBESARTAN
     Indication: HYPERTENSION
     Route: 048
     Dates: end: 20160311
  6. MOVICOL [Concomitant]
     Active Substance: POLYETHYLENE GLYCOL 3350\POTASSIUM CHLORIDE\SODIUM BICARBONATE\SODIUM CHLORIDE
  7. TAHOR [Concomitant]
     Active Substance: ATORVASTATIN CALCIUM
     Dosage: 10

REACTIONS (3)
  - Hypotension [Recovered/Resolved]
  - Dehydration [Unknown]
  - Atrioventricular block [Unknown]

NARRATIVE: CASE EVENT DATE: 20160311
